FAERS Safety Report 6836416-3 (Version None)
Quarter: 2010Q3

REPORT INFORMATION
  Report Type: 
  Country: None (occurrence: None)
  Receive Date: 20100713
  Receipt Date: 20100617
  Transmission Date: 20110219
  Serious: Yes (Death, Hospitalization)
  Sender: FDA-Public Use
  Company Number: BR-PFIZER INC-2010062338

PATIENT
  Age: 86 Year
  Sex: Male

DRUGS (3)
  1. LIPITOR [Suspect]
     Dosage: 20 MG, UNK
     Route: 048
     Dates: start: 20100318, end: 20100408
  2. VASTAREL [Concomitant]
     Dosage: UNK
     Dates: start: 20100318, end: 20100408
  3. PLAVIX [Concomitant]
     Dosage: UNK
     Dates: start: 20100308, end: 20100408

REACTIONS (4)
  - CARDIAC DISORDER [None]
  - CARDIAC FAILURE [None]
  - PANCREATIC DISORDER [None]
  - PANCREATIC INSUFFICIENCY [None]
